FAERS Safety Report 6725897-1 (Version None)
Quarter: 2010Q2

REPORT INFORMATION
  Report Type: 
  Country: None (occurrence: None)
  Receive Date: 20100514
  Receipt Date: 20100503
  Transmission Date: 20101027
  Serious: Yes (Other)
  Sender: FDA-Public Use
  Company Number: US-PFIZER INC-2009304904

PATIENT
  Sex: Male
  Weight: 87.075 kg

DRUGS (17)
  1. CHANTIX [Suspect]
     Indication: SMOKING CESSATION THERAPY
     Dosage: 0.5 MG, 1X/DAY
     Route: 048
     Dates: start: 20080301
  2. CHANTIX [Suspect]
     Indication: TOBACCO USER
     Dosage: 1 MG, 2X/DAY
     Route: 048
     Dates: start: 20090801, end: 20090901
  3. PLAVIX [Concomitant]
     Indication: CARDIAC DISORDER
     Dosage: UNK
     Route: 048
  4. PLAVIX [Concomitant]
     Indication: CARDIOVASCULAR DISORDER
  5. IMDUR [Concomitant]
     Indication: CARDIAC DISORDER
     Dosage: UNK
  6. IMDUR [Concomitant]
     Indication: CHEST PAIN
  7. IMDUR [Concomitant]
     Indication: CARDIOVASCULAR DISORDER
  8. TOPROL-XL [Concomitant]
     Dosage: UNK
  9. TERAZOSIN [Concomitant]
     Dosage: UNK
  10. NEURONTIN [Concomitant]
     Dosage: UNK
  11. ROBAXIN [Concomitant]
     Dosage: UNK
  12. SIMVASTATIN [Concomitant]
     Dosage: UNK
  13. OXYCONTIN [Concomitant]
     Dosage: UNK
  14. OXYCODONE [Concomitant]
     Dosage: UNK
  15. OMEPRAZOLE [Concomitant]
     Dosage: UNK
  16. FINASTERIDE [Concomitant]
     Indication: PROSTATOMEGALY
     Dosage: UNK
  17. CYMBALTA [Concomitant]

REACTIONS (12)
  - AGITATION [None]
  - CATARACT [None]
  - DEPRESSION [None]
  - EXOSTOSIS [None]
  - HEADACHE [None]
  - MANIA [None]
  - NERVOUSNESS [None]
  - PSYCHOMOTOR HYPERACTIVITY [None]
  - SUICIDAL IDEATION [None]
  - TREMOR [None]
  - VOMITING [None]
  - WITHDRAWAL SYNDROME [None]
